FAERS Safety Report 10399181 (Version 1)
Quarter: 2014Q3

REPORT INFORMATION
  Report Type: Spontaneous
  Country: US (occurrence: US)
  Receive Date: 20140821
  Receipt Date: 20140821
  Transmission Date: 20150326
  Serious: Yes (Other)
  Sender: FDA-Public Use
  Company Number: US-ABBVIE-14P-163-1273643-00

PATIENT
  Age: 51 Year
  Sex: Male

DRUGS (3)
  1. ANDROGEL [Suspect]
     Active Substance: TESTOSTERONE
     Indication: PRODUCT USED FOR UNKNOWN INDICATION
     Route: 061
  2. SYNTHROID [Suspect]
     Active Substance: LEVOTHYROXINE SODIUM
     Indication: PRODUCT USED FOR UNKNOWN INDICATION
     Dates: start: 1976
  3. UNKNOWN STEROIDS [Concomitant]
     Active Substance: UNSPECIFIED INGREDIENT
     Indication: PRODUCT USED FOR UNKNOWN INDICATION

REACTIONS (7)
  - Suicidal ideation [Unknown]
  - Depressed mood [Unknown]
  - Asthenia [Unknown]
  - Emotional distress [Unknown]
  - Fatigue [Unknown]
  - Alopecia [Unknown]
  - Depression [Unknown]
